FAERS Safety Report 23664692 (Version 1)
Quarter: 2024Q1

REPORT INFORMATION
  Report Type: Report from Study
  Country: CH (occurrence: CH)
  Receive Date: 20240322
  Receipt Date: 20240322
  Transmission Date: 20240410
  Serious: Yes (Other)
  Sender: FDA-Public Use
  Company Number: CH-JNJFOC-20240338633

PATIENT

DRUGS (2)
  1. DARATUMUMAB [Suspect]
     Active Substance: DARATUMUMAB
     Indication: Aplasia pure red cell
     Route: 065
  2. DARZALEX [Suspect]
     Active Substance: DARATUMUMAB
     Indication: Aplasia pure red cell
     Route: 058

REACTIONS (7)
  - Hypogammaglobulinaemia [Unknown]
  - Pneumocystis jirovecii infection [Unknown]
  - Infusion related reaction [Unknown]
  - Gastrointestinal disorder [Unknown]
  - Infection [Unknown]
  - Off label use [Unknown]
  - Drug ineffective [Unknown]
